FAERS Safety Report 6874742-2 (Version None)
Quarter: 2010Q3

REPORT INFORMATION
  Report Type: 
  Country: None (occurrence: None)
  Receive Date: 20100723
  Receipt Date: 20100714
  Transmission Date: 20110219
  Serious: Yes (Hospitalization)
  Sender: FDA-Public Use
  Company Number: 2010US002755

PATIENT
  Age: 50 Year
  Sex: Female
  Weight: 97 kg

DRUGS (6)
  1. PROGRAF [Suspect]
     Indication: PROPHYLAXIS AGAINST TRANSPLANT REJECTION
     Dosage: 7 MG, BID, ORAL
     Route: 048
     Dates: start: 20090501
  2. CELLCEPT [Concomitant]
  3. PREDNISONE [Concomitant]
  4. ARTENIMOL [Concomitant]
  5. LASIX [Concomitant]
  6. PROCARDIA XL [Concomitant]

REACTIONS (1)
  - NEPHROSTOMY TUBE PLACEMENT [None]
